FAERS Safety Report 13009684 (Version 2)
Quarter: 2016Q4

REPORT INFORMATION
  Report Type: Spontaneous
  Country: AU (occurrence: AU)
  Receive Date: 20161208
  Receipt Date: 20161216
  Transmission Date: 20170207
  Serious: Yes (Other)
  Sender: FDA-Public Use
  Company Number: AU-JNJFOC-20161206604

PATIENT
  Sex: Female

DRUGS (4)
  1. DUROGESIC [Suspect]
     Active Substance: FENTANYL
     Indication: PRODUCT USED FOR UNKNOWN INDICATION
     Route: 062
  2. TEGRETOL [Interacting]
     Active Substance: CARBAMAZEPINE
     Indication: PARKINSON^S DISEASE
     Route: 065
  3. DUROGESIC [Suspect]
     Active Substance: FENTANYL
     Indication: PRODUCT USED FOR UNKNOWN INDICATION
     Route: 062
  4. MADOPAR [Interacting]
     Active Substance: BENSERAZIDE HYDROCHLORIDE\LEVODOPA
     Indication: PARKINSON^S DISEASE
     Route: 065

REACTIONS (6)
  - Breakthrough pain [Unknown]
  - Hyperhidrosis [Unknown]
  - Product quality issue [Unknown]
  - Dysuria [Unknown]
  - Product adhesion issue [Unknown]
  - Drug interaction [Unknown]
